FAERS Safety Report 4905352-1 (Version None)
Quarter: 2006Q1

REPORT INFORMATION
  Report Type: 
  Country: None (occurrence: None)
  Receive Date: 20060207
  Receipt Date: 20060207
  Transmission Date: 20060701
  Serious: Yes (Hospitalization)
  Sender: FDA-Public Use
  Company Number: None

PATIENT
  Age: 29 Year
  Sex: Female
  Weight: 63.5036 kg

DRUGS (7)
  1. MORPHINE SULFATE [Suspect]
     Indication: CAESAREAN SECTION
     Dates: start: 20060103, end: 20060104
  2. BENADRYL [Concomitant]
  3. ZOFRAN [Concomitant]
  4. DOXEPIN HCL [Concomitant]
  5. NARCAN [Concomitant]
  6. DEMEROL [Concomitant]
  7. PHENERGAN [Concomitant]

REACTIONS (2)
  - POST PROCEDURAL COMPLICATION [None]
  - PRURITUS [None]
